FAERS Safety Report 6280056-4 (Version None)
Quarter: 2009Q3

REPORT INFORMATION
  Report Type: 
  Country: None (occurrence: None)
  Receive Date: 20090723
  Receipt Date: 20090715
  Transmission Date: 20100115
  Serious: Yes (Other)
  Sender: FDA-Public Use
  Company Number: BR-ABBOTT-09P-020-0567441-00

PATIENT
  Age: 33 Year
  Sex: Female

DRUGS (1)
  1. HUMIRA [Suspect]
     Indication: DRUG USE FOR UNKNOWN INDICATION
     Route: 058
     Dates: start: 20081001, end: 20090301

REACTIONS (6)
  - COUGH [None]
  - LUNG DISORDER [None]
  - PLEURAL EFFUSION [None]
  - PYREXIA [None]
  - TUBERCULIN TEST POSITIVE [None]
  - TUBERCULOSIS [None]
